FAERS Safety Report 12275506 (Version 2)
Quarter: 2016Q2

REPORT INFORMATION
  Report Type: Spontaneous
  Country: US (occurrence: US)
  Receive Date: 20160415
  Receipt Date: 20160512
  Transmission Date: 20160815
  Serious: No
  Sender: FDA-Public Use
  Company Number: US-UCBSA-2015027933

PATIENT
  Sex: Male

DRUGS (1)
  1. NEUPRO [Suspect]
     Active Substance: ROTIGOTINE
     Indication: PARKINSON^S DISEASE
     Dosage: 4 MG, ONCE DAILY (4 MG/1 A DAY)

REACTIONS (5)
  - Cerebral disorder [Unknown]
  - Dysstasia [Unknown]
  - Memory impairment [Unknown]
  - Gait disturbance [Unknown]
  - Malaise [Unknown]
